FAERS Safety Report 8463863-9 (Version None)
Quarter: 2012Q2

REPORT INFORMATION
  Report Type: 
  Country: None (occurrence: None)
  Receive Date: 20120625
  Receipt Date: 20120612
  Transmission Date: 20120825
  Serious: Yes (Hospitalization)
  Sender: FDA-Public Use
  Company Number: DE-ASTRAZENECA-2012SE41456

PATIENT
  Age: 6 Month
  Sex: Male
  Weight: 5.5 kg

DRUGS (6)
  1. SYNAGIS [Suspect]
     Dosage: 100 MG/5.0 KG
     Route: 030
     Dates: start: 20120209, end: 20120209
  2. SYNAGIS [Suspect]
     Dosage: 100 MG/5.5 KG
     Route: 030
     Dates: start: 20120307, end: 20120307
  3. SYNAGIS [Suspect]
     Dosage: 50 MG/3.20 KG
     Route: 030
     Dates: start: 20111117, end: 20111117
  4. SYNAGIS [Suspect]
     Indication: ANTIVIRAL PROPHYLAXIS
     Dosage: 50 MG/2.91 KG
     Route: 030
     Dates: start: 20111024, end: 20111024
  5. SYNAGIS [Suspect]
     Dosage: 50 MG/4.09 KG
     Route: 030
     Dates: start: 20111215, end: 20111215
  6. SYNAGIS [Suspect]
     Dosage: 100 MG/4.70 KG
     Route: 030
     Dates: start: 20120112, end: 20120112

REACTIONS (3)
  - PYREXIA [None]
  - DYSPNOEA [None]
  - OXYGEN SATURATION DECREASED [None]
